FAERS Safety Report 12722189 (Version 1)
Quarter: 2016Q3

REPORT INFORMATION
  Report Type: Spontaneous
  Country: CA (occurrence: CA)
  Receive Date: 20160907
  Receipt Date: 20160907
  Transmission Date: 20161109
  Serious: Yes (Death, Other)
  Sender: FDA-Public Use
  Company Number: CA-REGENERON PHARMACEUTICALS, INC.-2016-21325

PATIENT

DRUGS (2)
  1. EYLEA [Suspect]
     Active Substance: AFLIBERCEPT
     Indication: AGE-RELATED MACULAR DEGENERATION
     Dosage: THE PATIENT RECEIVED 16 INJECTIONS OF EYLEA PRIOR TO THE EVENT.
     Route: 031
     Dates: start: 20141217
  2. EYLEA [Suspect]
     Active Substance: AFLIBERCEPT
     Dosage: THE PATIENT RECEIVED 16 INJECTIONS OF EYLEA PRIOR TO THE EVENT.
     Route: 031
     Dates: start: 20160707, end: 20160707

REACTIONS (1)
  - Infarction [Fatal]
